FAERS Safety Report 14671253 (Version 3)
Quarter: 2019Q4

REPORT INFORMATION
  Report Type: Report from Study
  Country: US (occurrence: US)
  Receive Date: 20180322
  Receipt Date: 20191226
  Transmission Date: 20200122
  Serious: Yes (Other)
  Sender: FDA-Public Use
  Company Number: US-SA-2018SA021657

PATIENT
  Age: 64 Year
  Sex: Female
  Weight: 73.94 kg

DRUGS (16)
  1. DIAZEPAM. [Concomitant]
     Active Substance: DIAZEPAM
     Dosage: 1 DF,QD
     Route: 048
  2. MONTELUKAST [Concomitant]
     Active Substance: MONTELUKAST SODIUM
     Dosage: 10 MG,UNK
     Route: 065
  3. TERIFLUNOMIDE. [Suspect]
     Active Substance: TERIFLUNOMIDE
     Indication: MULTIPLE SCLEROSIS
     Dosage: 14 UNK
     Route: 048
     Dates: start: 20130101
  4. BACLOFEN. [Concomitant]
     Active Substance: BACLOFEN
     Dosage: 1 DF,TID
     Route: 048
  5. BENZONATATE. [Concomitant]
     Active Substance: BENZONATATE
     Dosage: 100 MG,UNK
     Route: 065
  6. LOSARTAN. [Concomitant]
     Active Substance: LOSARTAN
     Dosage: 100 MG,UNK
     Route: 065
  7. PROLIA [Concomitant]
     Active Substance: DENOSUMAB
     Indication: OSTEOPOROSIS
     Dosage: UNK UNK,UNK
     Route: 065
  8. TERIFLUNOMIDE. [Suspect]
     Active Substance: TERIFLUNOMIDE
     Dosage: 14 MG, QD
     Route: 048
     Dates: start: 20170110
  9. VALSARTAN. [Concomitant]
     Active Substance: VALSARTAN
     Dosage: 160 MG,UNK
     Route: 065
  10. PROCRIT [Concomitant]
     Active Substance: ERYTHROPOIETIN
     Indication: ANAEMIA
     Dosage: UNK UNK,UNK
     Route: 065
  11. TERIFLUNOMIDE. [Suspect]
     Active Substance: TERIFLUNOMIDE
     Dosage: 14 MG, QD
     Route: 048
     Dates: start: 20171211
  12. BACLOFEN. [Concomitant]
     Active Substance: BACLOFEN
     Dosage: 10 MG,HS
     Route: 065
  13. METHYLPREDNISOLONE. [Concomitant]
     Active Substance: METHYLPREDNISOLONE
     Dosage: 4 MG,UNK
     Route: 065
  14. IBUPROFEN. [Concomitant]
     Active Substance: IBUPROFEN
     Indication: BACK PAIN
     Dosage: UNK UNK,UNK
     Route: 065
  15. ATENOLOL. [Concomitant]
     Active Substance: ATENOLOL
     Dosage: 25 MG,UNK
     Route: 065
  16. CYANOCOBALAMIN. [Concomitant]
     Active Substance: CYANOCOBALAMIN
     Indication: ANAEMIA
     Dosage: UNK UNK,UNK
     Route: 065

REACTIONS (36)
  - Blindness [Unknown]
  - Muscular weakness [Not Recovered/Not Resolved]
  - Dysphonia [Unknown]
  - Amnesia [Unknown]
  - Depression [Unknown]
  - Appetite disorder [Unknown]
  - Hyperaesthesia [Unknown]
  - Fall [Unknown]
  - Temperature intolerance [Unknown]
  - Neck pain [Unknown]
  - Hypertension [Unknown]
  - Product dose omission [Unknown]
  - Condition aggravated [Unknown]
  - Ligament sprain [Unknown]
  - Dysgraphia [Not Recovered/Not Resolved]
  - Haemorrhage [Unknown]
  - Sleep disorder [Unknown]
  - Skin burning sensation [Unknown]
  - Condition aggravated [Not Recovered/Not Resolved]
  - Arthritis [Not Recovered/Not Resolved]
  - Back pain [Unknown]
  - Product dose omission [Unknown]
  - Constipation [Unknown]
  - Dysphagia [Unknown]
  - Somnolence [Unknown]
  - Aphasia [Unknown]
  - Cough [Unknown]
  - Muscle spasms [Unknown]
  - Hypoaesthesia [Unknown]
  - Choking sensation [Unknown]
  - Fatigue [Unknown]
  - Upper-airway cough syndrome [Unknown]
  - Palpitations [Unknown]
  - Balance disorder [Unknown]
  - Contusion [Unknown]
  - Dyspnoea [Unknown]

NARRATIVE: CASE EVENT DATE: 201709
